FAERS Safety Report 12982373 (Version 1)
Quarter: 2016Q4

REPORT INFORMATION
  Report Type: Spontaneous
  Country: PT (occurrence: PT)
  Receive Date: 20161129
  Receipt Date: 20161129
  Transmission Date: 20170207
  Serious: Yes (Other)
  Sender: FDA-Public Use
  Company Number: PHHY2016PT163278

PATIENT
  Age: 35 Year

DRUGS (1)
  1. GILENYA [Suspect]
     Active Substance: FINGOLIMOD HYDROCHLORIDE
     Indication: CONCENTRIC SCLEROSIS
     Route: 065

REACTIONS (5)
  - Autoimmune disorder [Unknown]
  - Drug ineffective [Unknown]
  - Central nervous system lesion [Unknown]
  - Concomitant disease aggravated [Unknown]
  - Product use issue [Unknown]
